FAERS Safety Report 19699486 (Version 2)
Quarter: 2021Q3

REPORT INFORMATION
  Report Type: Report from Study
  Country: US (occurrence: US)
  Receive Date: 20210813
  Receipt Date: 20210830
  Transmission Date: 20211014
  Serious: Yes (Hospitalization)
  Sender: FDA-Public Use
  Company Number: US-REGENERON PHARMACEUTICALS, INC.-2021-68836

PATIENT

DRUGS (1)
  1. CASIRIVIMAB AND IMDEVIMAB [Suspect]
     Active Substance: CASIRIVIMAB\IMDEVIMAB
     Indication: COVID-19
     Dosage: UNK, SINGLE
     Route: 042
     Dates: start: 20210714, end: 20210714

REACTIONS (3)
  - Infusion site induration [Not Recovered/Not Resolved]
  - Infusion site pain [Unknown]
  - Hypokinesia [Unknown]

NARRATIVE: CASE EVENT DATE: 20210714
